FAERS Safety Report 9935861 (Version 1)
Quarter: 2014Q1

REPORT INFORMATION
  Report Type: Spontaneous
  Country: US (occurrence: US)
  Receive Date: 20140228
  Receipt Date: 20140228
  Transmission Date: 20141002
  Serious: No
  Sender: FDA-Public Use
  Company Number: US-AMGEN-USASP2013072659

PATIENT
  Age: 55 Year
  Sex: Male
  Weight: 122.45 kg

DRUGS (6)
  1. ENBREL [Suspect]
     Indication: PRODUCT USED FOR UNKNOWN INDICATION
     Dosage: 50 MG, QWK
     Route: 058
  2. VITAMIN D                          /00107901/ [Concomitant]
     Dosage: 1000 UNIT, UNK
  3. FISH OIL [Concomitant]
     Dosage: UNK
  4. LIPITOR [Concomitant]
     Dosage: 10 MG, UNK
  5. MOBIC [Concomitant]
     Dosage: 7.5 MG, UNK
  6. PREVACID [Concomitant]
     Dosage: 30 MG, UNK

REACTIONS (4)
  - Musculoskeletal chest pain [Unknown]
  - Chest pain [Unknown]
  - Herpes zoster [Unknown]
  - Erythema [Unknown]
